FAERS Safety Report 8293998-5 (Version None)
Quarter: 2012Q2

REPORT INFORMATION
  Report Type: 
  Country: None (occurrence: None)
  Receive Date: 20120418
  Receipt Date: 20120416
  Transmission Date: 20120825
  Serious: Yes (Other)
  Sender: FDA-Public Use
  Company Number: US-PFIZER INC-2012094776

PATIENT
  Sex: Female
  Weight: 89.342 kg

DRUGS (8)
  1. NICODERM [Suspect]
     Indication: SMOKING CESSATION THERAPY
     Dosage: UNK
  2. GEODON [Suspect]
     Indication: POST-TRAUMATIC STRESS DISORDER
  3. GEODON [Suspect]
     Indication: ANXIETY
  4. GEODON [Suspect]
     Indication: AFFECTIVE DISORDER
  5. WELLBUTRIN [Suspect]
     Indication: SMOKING CESSATION THERAPY
     Dosage: UNK
     Route: 048
  6. GEODON [Suspect]
     Indication: STRESS
     Dosage: UNK
     Route: 048
  7. GEODON [Suspect]
     Indication: BIPOLAR DISORDER
  8. CLONAZEPAM [Suspect]
     Dosage: UNK

REACTIONS (2)
  - MYOCARDIAL INFARCTION [None]
  - MENTAL IMPAIRMENT [None]
